FAERS Safety Report 8345646-3 (Version None)
Quarter: 2012Q2

REPORT INFORMATION
  Report Type: 
  Country: None (occurrence: None)
  Receive Date: 20120508
  Receipt Date: 20120430
  Transmission Date: 20120825
  Serious: Yes (Hospitalization, Disabling, Other)
  Sender: FDA-Public Use
  Company Number: US-MERCK-1103USA01242

PATIENT
  Age: 53 Year
  Sex: Female
  Weight: 77 kg

DRUGS (12)
  1. VITAMIN D (UNSPECIFIED) [Concomitant]
     Route: 048
  2. FOSAMAX [Suspect]
     Route: 048
     Dates: start: 19980708, end: 20010126
  3. FOSAMAX [Suspect]
     Route: 048
     Dates: start: 20010127, end: 20080228
  4. ALENDRONATE SODIUM [Suspect]
     Indication: OSTEOPOROSIS
     Route: 048
     Dates: start: 20080301, end: 20080601
  5. FOSAMAX [Suspect]
     Indication: OSTEOPOROSIS PROPHYLAXIS
     Route: 048
     Dates: start: 19950101, end: 20080701
  6. FOSAMAX [Suspect]
     Indication: OSTEOPOROSIS
     Route: 048
     Dates: start: 19950101, end: 20080701
  7. FOSAMAX [Suspect]
     Route: 048
     Dates: start: 19980708, end: 20010126
  8. FOSAMAX [Suspect]
     Route: 048
     Dates: start: 20010127, end: 20080228
  9. ASACOL [Concomitant]
     Route: 065
  10. CALCIUM (UNSPECIFIED) [Concomitant]
     Route: 048
  11. [THERAPY UNSPECIFIED] [Concomitant]
     Route: 065
     Dates: start: 19900101
  12. CALCIO CIT [Concomitant]
     Route: 065
     Dates: start: 19800101

REACTIONS (42)
  - FEMUR FRACTURE [None]
  - ACTINIC KERATOSIS [None]
  - ANXIETY [None]
  - DEPRESSION [None]
  - VISION BLURRED [None]
  - LACERATION [None]
  - OSTEOARTHRITIS [None]
  - ONYCHOMYCOSIS [None]
  - CHEST DISCOMFORT [None]
  - SKIN PAPILLOMA [None]
  - VULVOVAGINAL DRYNESS [None]
  - TREATMENT NONCOMPLIANCE [None]
  - DYSGEUSIA [None]
  - HYPOSMIA [None]
  - BREAST CANCER [None]
  - MUSCULAR WEAKNESS [None]
  - MUSCULOSKELETAL PAIN [None]
  - HEPATOMEGALY [None]
  - OROPHARYNGEAL PAIN [None]
  - BLOOD PRESSURE INCREASED [None]
  - BREAST CANCER IN SITU [None]
  - FALL [None]
  - HAEMORRHAGIC ANAEMIA [None]
  - INFLAMMATORY BOWEL DISEASE [None]
  - RASH [None]
  - DENTAL CARIES [None]
  - CONSTIPATION [None]
  - MENISCUS LESION [None]
  - AMNESIA [None]
  - FOOT FRACTURE [None]
  - WEIGHT INCREASED [None]
  - VITREOUS FLOATERS [None]
  - TOOTH DISORDER [None]
  - PROCTOCOLITIS [None]
  - GASTROOESOPHAGEAL REFLUX DISEASE [None]
  - AXILLARY MASS [None]
  - FAMILY STRESS [None]
  - FRACTURE MALUNION [None]
  - PSEUDOPOLYP [None]
  - SYNOVIAL CYST [None]
  - OSTEOPENIA [None]
  - NAUSEA [None]
